FAERS Safety Report 7424081-6 (Version None)
Quarter: 2011Q2

REPORT INFORMATION
  Report Type: 
  Country: None (occurrence: None)
  Receive Date: 20110419
  Receipt Date: 20110408
  Transmission Date: 20111010
  Serious: Yes (Hospitalization, Other)
  Sender: FDA-Public Use
  Company Number: PHHY2011ES30694

PATIENT
  Age: 83 Year
  Sex: Female

DRUGS (6)
  1. SIMVASTATIN [Suspect]
     Dosage: 40 MG, DAILY
  2. RONAME [Concomitant]
     Dosage: 2 MG, DAILY
  3. SINTROM [Interacting]
     Dosage: UNK
     Dates: start: 20071101, end: 20090907
  4. CLOPIDOGREL [Interacting]
  5. METFORMIN HCL [Concomitant]
     Dosage: 1700 MG, DAILY
  6. PANTOPRAZOLE [Interacting]
     Dosage: 40 MG, DAILY
     Route: 048

REACTIONS (6)
  - HAEMATURIA [None]
  - HAEMATOCRIT DECREASED [None]
  - DRUG INTERACTION [None]
  - HEART RATE INCREASED [None]
  - HYDROCEPHALUS [None]
  - FEMUR FRACTURE [None]
